FAERS Safety Report 8212423-3 (Version None)
Quarter: 2012Q1

REPORT INFORMATION
  Report Type: 
  Country: None (occurrence: None)
  Receive Date: 20120315
  Receipt Date: 20120308
  Transmission Date: 20120608
  Serious: Yes (Other)
  Sender: FDA-Public Use
  Company Number: US-BAYER-200938752NA

PATIENT
  Age: 22 Year
  Sex: Female
  Weight: 140.59 kg

DRUGS (10)
  1. YAZ [Suspect]
     Indication: PREMENSTRUAL SYNDROME
     Dosage: 1 DF, QD
     Route: 048
     Dates: start: 20071001, end: 20080101
  2. YASMIN [Suspect]
     Indication: PREMENSTRUAL SYNDROME
  3. YAZ [Suspect]
  4. DIAMOX SRC [Concomitant]
     Route: 048
  5. YASMIN [Suspect]
  6. TOPAMAX [Concomitant]
     Route: 048
  7. ANALGESICS [Concomitant]
  8. YASMIN [Suspect]
     Indication: CONTRACEPTION
     Dosage: 1 DF, QD
     Route: 048
     Dates: start: 20071001, end: 20080101
  9. PLAVIX [Concomitant]
     Dosage: 7 MG, UNK
     Route: 048
  10. TYLENOL [Concomitant]

REACTIONS (7)
  - BLINDNESS TRANSIENT [None]
  - OPTIC NERVE SHEATH HAEMORRHAGE [None]
  - INTRACRANIAL VENOUS SINUS THROMBOSIS [None]
  - PAIN [None]
  - HEADACHE [None]
  - VOMITING [None]
  - DIZZINESS [None]
